FAERS Safety Report 24882300 (Version 1)
Quarter: 2025Q1

REPORT INFORMATION
  Report Type: Spontaneous
  Country: US (occurrence: US)
  Receive Date: 20250124
  Receipt Date: 20250124
  Transmission Date: 20250409
  Serious: No
  Sender: NOVARTIS
  Company Number: US-002147023-NVSC2025US007333

PATIENT
  Sex: Male

DRUGS (2)
  1. LEQVIO [Suspect]
     Active Substance: INCLISIRAN SODIUM
     Indication: Product used for unknown indication
     Route: 065
     Dates: start: 20241015
  2. METAMUCIL [Concomitant]
     Active Substance: PLANTAGO SEED
     Indication: Blood cholesterol
     Route: 065

REACTIONS (5)
  - Tinnitus [Unknown]
  - Hypertension [Unknown]
  - Blood cholesterol abnormal [Unknown]
  - Malaise [Unknown]
  - Product dose omission issue [Unknown]
